FAERS Safety Report 21331270 (Version 3)
Quarter: 2022Q3

REPORT INFORMATION
  Report Type: Spontaneous
  Country: EG (occurrence: EG)
  Receive Date: 20220914
  Receipt Date: 20220930
  Transmission Date: 20221026
  Serious: Yes (Other)
  Sender: FDA-Public Use
  Company Number: EG-NOVOPROD-957303

PATIENT
  Age: 848 Month
  Sex: Female
  Weight: 50 kg

DRUGS (2)
  1. TRESIBA [Suspect]
     Active Substance: INSULIN DEGLUDEC
     Indication: Type 2 diabetes mellitus
     Dosage: 10 IU, QD(NIGHT)
     Route: 058
  2. VILGAT [Concomitant]
     Indication: Type 2 diabetes mellitus
     Dosage: 50 MG, QD(1TAB/AFTERNOON )(STARTDE FROM A MONTH AGO)

REACTIONS (9)
  - Retinal operation [Unknown]
  - Retinal operation [Unknown]
  - Hyperglycaemia [Not Recovered/Not Resolved]
  - Cataract [Not Recovered/Not Resolved]
  - Weight decreased [Unknown]
  - Dental discomfort [Unknown]
  - Tooth loss [Not Recovered/Not Resolved]
  - Product storage error [Unknown]
  - Product storage error [Unknown]

NARRATIVE: CASE EVENT DATE: 20220901
